FAERS Safety Report 18439634 (Version 1)
Quarter: 2020Q4

REPORT INFORMATION
  Report Type: Spontaneous
  Country: US (occurrence: US)
  Receive Date: 20201028
  Receipt Date: 20201028
  Transmission Date: 20210114
  Serious: No
  Sender: FDA-Public Use
  Company Number: None

PATIENT
  Age: 24 Year
  Sex: Female

DRUGS (7)
  1. SUBOXONE [Concomitant]
     Active Substance: BUPRENORPHINE HYDROCHLORIDE\NALOXONE HYDROCHLORIDE
  2. REMDESIVIR. [Suspect]
     Active Substance: REMDESIVIR
     Indication: COVID-19
     Dates: start: 20200801, end: 20200803
  3. ACETAMINOPHEN. [Concomitant]
     Active Substance: ACETAMINOPHEN
  4. DEXAMETHASONE. [Concomitant]
     Active Substance: DEXAMETHASONE
  5. IOHEXOL (8/1 AT 2022) [Concomitant]
  6. CEFTRIAXONE. [Concomitant]
     Active Substance: CEFTRIAXONE
  7. ZINC SULFATE. [Concomitant]
     Active Substance: ZINC SULFATE

REACTIONS (3)
  - Pneumonia [None]
  - Sinus bradycardia [None]
  - Pyrexia [None]
